FAERS Safety Report 20331589 (Version 1)
Quarter: 2022Q1

REPORT INFORMATION
  Report Type: Spontaneous
  Country: US (occurrence: None)
  Receive Date: 20220113
  Receipt Date: 20220113
  Transmission Date: 20220423
  Serious: No
  Sender: FDA-Public Use
  Company Number: US-Neopharma Inc-000695

PATIENT
  Age: 65 Year
  Sex: Female

DRUGS (2)
  1. AUGMENTIN [Suspect]
     Active Substance: AMOXICILLIN\CLAVULANATE POTASSIUM
     Indication: Oral infection
     Dates: start: 20210505, end: 20210508
  2. DUPIXENT [Suspect]
     Active Substance: DUPILUMAB
     Indication: Dermatitis atopic
     Dosage: LOADING DOSE OF 600 MG AND MAINTENANCE DOSE OF 300 MG SQ EVERY OTHER WEEK
     Route: 058
     Dates: start: 20210418

REACTIONS (3)
  - Infection [Unknown]
  - Stomatitis [Unknown]
  - Rash erythematous [Unknown]
